FAERS Safety Report 9350584 (Version 3)
Quarter: 2013Q3

REPORT INFORMATION
  Report Type: Spontaneous
  Country: US (occurrence: US)
  Receive Date: 20130617
  Receipt Date: 20130819
  Transmission Date: 20140515
  Serious: Yes (Other)
  Sender: FDA-Public Use
  Company Number: US-JNJFOC-20130602168

PATIENT
  Age: 19 Year
  Sex: Male
  Weight: 99.79 kg

DRUGS (4)
  1. RISPERDAL [Suspect]
     Indication: ANXIETY
     Dosage: 4MG AND 3MG
     Route: 048
     Dates: start: 20110625, end: 20120425
  2. RISPERDAL [Suspect]
     Indication: ANXIETY
     Route: 048
     Dates: end: 20120501
  3. RISPERDAL [Suspect]
     Indication: BIPOLAR DISORDER
     Dosage: 4MG AND 3MG
     Route: 048
     Dates: start: 20110625, end: 20120425
  4. RISPERDAL [Suspect]
     Indication: BIPOLAR DISORDER
     Route: 048
     Dates: end: 20120501

REACTIONS (12)
  - Suicidal ideation [Recovered/Resolved]
  - Schizophrenia [Recovered/Resolved]
  - Dementia [Recovered/Resolved]
  - Gynaecomastia [Recovered/Resolved]
  - Headache [Recovered/Resolved]
  - Muscle twitching [Recovered/Resolved]
  - Dyskinesia [Recovered/Resolved]
  - Abnormal weight gain [Recovered/Resolved]
  - Depression [Recovered/Resolved]
  - Hypertension [Recovered/Resolved]
  - Insomnia [Recovered/Resolved]
  - Drug ineffective [Unknown]
